FAERS Safety Report 8402287-7 (Version None)
Quarter: 2012Q2

REPORT INFORMATION
  Report Type: 
  Country: None (occurrence: None)
  Receive Date: 20120601
  Receipt Date: 20120523
  Transmission Date: 20120825
  Serious: Yes (Other)
  Sender: FDA-Public Use
  Company Number: US-BRISTOL-MYERS SQUIBB COMPANY-16619975

PATIENT
  Sex: Female

DRUGS (2)
  1. REYATAZ [Suspect]
     Route: 048
  2. RITONAVIR [Suspect]
     Route: 048

REACTIONS (1)
  - RENAL IMPAIRMENT [None]
